FAERS Safety Report 4434376-6 (Version None)
Quarter: 2004Q3

REPORT INFORMATION
  Report Type: 
  Country: None (occurrence: None)
  Receive Date: 20040825
  Receipt Date: 20040816
  Transmission Date: 20050211
  Serious: Yes (Hospitalization)
  Sender: FDA-Public Use
  Company Number: 2004203598US

PATIENT
  Age: 49 Year
  Sex: Female
  Weight: 137.4 kg

DRUGS (13)
  1. DETROL LA [Suspect]
     Indication: HYPERTONIC BLADDER
     Dosage: 4 MG, QD, ORAL
     Route: 048
     Dates: start: 20040302
  2. AYGESTIN [Suspect]
     Indication: MENORRHAGIA
     Dosage: ORAL
     Route: 048
     Dates: start: 20040501, end: 20040801
  3. LASIX [Concomitant]
  4. NEURONTIN [Concomitant]
  5. DILANTIN [Concomitant]
  6. FLEXERIL [Concomitant]
  7. ALBUTEROL [Concomitant]
  8. AZMACORT [Concomitant]
  9. TRILAFON [Concomitant]
  10. SINEQUAN [Concomitant]
  11. K-DUR 10 [Concomitant]
  12. COZAAR [Concomitant]
  13. TOPAMAX [Concomitant]

REACTIONS (7)
  - CYSTITIS [None]
  - DEEP VEIN THROMBOSIS [None]
  - DRUG INEFFECTIVE [None]
  - ENURESIS [None]
  - LYMPHOEDEMA [None]
  - THERAPY NON-RESPONDER [None]
  - VAGINAL MYCOSIS [None]
